FAERS Safety Report 18341339 (Version 1)
Quarter: 2020Q4

REPORT INFORMATION
  Report Type: Spontaneous
  Country: KW (occurrence: KW)
  Receive Date: 20201003
  Receipt Date: 20201003
  Transmission Date: 20210113
  Serious: Yes (Other)
  Sender: FDA-Public Use
  Company Number: NVSC2020KW266894

PATIENT
  Sex: Male

DRUGS (1)
  1. REVOLADE [Suspect]
     Active Substance: ELTROMBOPAG
     Indication: IMMUNE THROMBOCYTOPENIA
     Dosage: 100 MG
     Route: 048

REACTIONS (4)
  - Therapy non-responder [Unknown]
  - Thrombocytopenia [Unknown]
  - Haemorrhage [Unknown]
  - Incorrect dose administered [Unknown]
